FAERS Safety Report 9522792 (Version 2)
Quarter: 2014Q1

REPORT INFORMATION
  Report Type: Spontaneous
  Country: US (occurrence: None)
  Receive Date: 20130305
  Receipt Date: 20140306
  Transmission Date: 20141002
  Serious: Yes (Hospitalization, Other)
  Sender: FDA-Public Use
  Company Number: 163-21880-12070574

PATIENT
  Age: 63 Year
  Sex: Female
  Weight: 92.08 kg

DRUGS (27)
  1. REVLIMID [Suspect]
     Indication: PLASMA CELL MYELOMA
     Route: 048
     Dates: start: 201003
  2. DEXAMETHASONE (DEXAMETHASONE) [Concomitant]
  3. VELCADE (BORTEZOMIB) [Concomitant]
  4. BIAXIN (CLARITHROMYCIN) [Concomitant]
  5. CYTOXAN (CYCLOPHOSPHAMIDE) [Concomitant]
  6. ATROVENT (IPRATROPIUM BROMIDE) [Concomitant]
  7. ADVAIR (SERRETIDE MITE) [Concomitant]
  8. ASPIRIN (ACETYLSALICYLIC ACID) [Concomitant]
  9. DAPSONE [Concomitant]
  10. SYNTHROID (LEVOTHYROXINE SODIUM) [Concomitant]
  11. VYTORIN (INEGY) [Concomitant]
  12. DILANTIN (PHENYTOIN SODIUM) [Concomitant]
  13. ACYCLOVIR (ACICLOVIR) [Concomitant]
  14. B-COMPLEX WITH VITAMIN C-FOLIC ACID (COMBEVIT C) [Concomitant]
  15. CALCIUM PHOSPHATE/ VITAMIN D2 (CALCIUM PHOSPHATE W/VITAMIN D NOS) [Concomitant]
  16. DARBEPOETIN ALFA POLYSORBATE (DARBEPOETIN ALFA) (INJECTION) [Concomitant]
  17. DOCUSATE SODIUM (DOCUSATE SODIUM) [Concomitant]
  18. FUROSEMIDE (FUROSEMIDE) [Concomitant]
  19. GABAPENTIN (GABAPENTIN) [Concomitant]
  20. IPRATROPIUM (IPRATROPIUM) [Concomitant]
  21. MAGNESIUM OXIDE (MAGNESIUM OXIDE) [Concomitant]
  22. SENNA [Concomitant]
  23. ALBUTEROL (SALBUTAMOL) [Concomitant]
  24. BLOOD (BLOOD TRANSFUSION, AUXILIARY PRODUCTS) [Concomitant]
  25. PREDNISONE (PREDNISONE) [Concomitant]
  26. EZETIMIBE-SIMVASTATIN (INEGY) [Concomitant]
  27. METFORMIN (METFORMIN) [Concomitant]

REACTIONS (9)
  - Pneumonia [None]
  - Renal failure acute [None]
  - Atrial fibrillation [None]
  - Thrombocytopenia [None]
  - Plasma cell myeloma [None]
  - Pharyngitis [None]
  - Dizziness [None]
  - Pyrexia [None]
  - Neutropenia [None]
